FAERS Safety Report 23695252 (Version 6)
Quarter: 2025Q4

REPORT INFORMATION
  Report Type: Spontaneous
  Country: US (occurrence: US)
  Receive Date: 20240402
  Receipt Date: 20251104
  Transmission Date: 20260118
  Serious: No
  Sender: BIOGEN
  Company Number: US-BIOGEN-2024BI01247762

PATIENT
  Age: 36 Year
  Sex: Male

DRUGS (5)
  1. SKYCLARYS [Suspect]
     Active Substance: OMAVELOXOLONE
     Indication: Friedreich^s ataxia
  2. SKYCLARYS [Suspect]
     Active Substance: OMAVELOXOLONE
     Dates: start: 20230705
  3. SKYCLARYS [Suspect]
     Active Substance: OMAVELOXOLONE
     Dates: start: 20230705
  4. SKYCLARYS [Suspect]
     Active Substance: OMAVELOXOLONE
     Dates: start: 20230705
  5. SKYCLARYS [Suspect]
     Active Substance: OMAVELOXOLONE
     Dates: start: 20230705

REACTIONS (6)
  - Back pain [Unknown]
  - Skin disorder [Unknown]
  - Nasopharyngitis [Unknown]
  - Fall [Recovered/Resolved]
  - Scoliosis [Unknown]
  - Drug ineffective [Unknown]
